FAERS Safety Report 25553216 (Version 1)
Quarter: 2025Q3

REPORT INFORMATION
  Report Type: Spontaneous
  Country: GB (occurrence: GB)
  Receive Date: 20250715
  Receipt Date: 20250715
  Transmission Date: 20251021
  Serious: Yes (Other)
  Sender: HIKMA
  Company Number: None

PATIENT
  Age: 79 Year

DRUGS (15)
  1. FLUCONAZOLE [Suspect]
     Active Substance: FLUCONAZOLE
     Indication: Product used for unknown indication
     Route: 065
  2. AMLODIPINE [Concomitant]
     Active Substance: AMLODIPINE BESYLATE
     Indication: Product used for unknown indication
     Dosage: ONE TO BE TAKEN EACH DAY
     Route: 065
  3. ARTIFICIAL SALIVA [Concomitant]
     Indication: Product used for unknown indication
     Route: 065
  4. BENZYDAMINE [Concomitant]
     Active Substance: BENZYDAMINE
     Indication: Oropharyngeal pain
     Dosage: 4 SPRAYS FOUR TIMES A DAY WHEN REQUIRED OR SORE THROAT
     Route: 065
  5. CASPOFUNGIN [Concomitant]
     Active Substance: CASPOFUNGIN
     Indication: Product used for unknown indication
     Route: 065
  6. CHLORHEXIDINE [Concomitant]
     Active Substance: CHLORHEXIDINE
     Indication: Product used for unknown indication
     Route: 061
  7. ENSURE COMPACT [Concomitant]
     Indication: Product used for unknown indication
     Dosage: 125 ML, TID
     Route: 065
  8. FERROUS SULFATE [Concomitant]
     Active Substance: FERROUS SULFATE
     Indication: Product used for unknown indication
     Dosage: 1 DOSAGE FORM, QD
     Route: 065
  9. FOLIC ACID [Concomitant]
     Active Substance: FOLIC ACID
     Indication: Product used for unknown indication
     Dosage: 1 DOSAGE FORM, QD
     Route: 065
  10. POLYETHYLENE GLYCOLS [Concomitant]
     Active Substance: POLYETHYLENE GLYCOLS
     Indication: Constipation
     Dosage: 1 SACHET, BID (WHEN REQUIRED)
     Route: 065
  11. MIRTAZAPINE [Concomitant]
     Active Substance: MIRTAZAPINE
     Indication: Product used for unknown indication
     Dosage: ONE TO BE TAKEN AT NIGHT
     Route: 065
  12. MORPHINE [Concomitant]
     Active Substance: MORPHINE
     Indication: Product used for unknown indication
     Dosage: 1 DOSAGE FORM, Q12H
     Route: 065
  13. ACETAMINOPHEN [Concomitant]
     Active Substance: ACETAMINOPHEN
     Indication: Product used for unknown indication
     Dosage: TWO TO BE TAKEN EVERY 4-6 HOURS UP TO THREE TIMES A DAY
     Route: 065
  14. HERBALS\SENNOSIDES [Concomitant]
     Active Substance: HERBALS\SENNOSIDES
     Indication: Constipation
     Dosage: TWO TO BE TAKEN AT NIGHT FOR CONSTIPATION WHEN REQUIRED
     Route: 065
  15. VOLTAROL PAIN-EZE [DICLOFENAC DIETHYLAMINE] [Concomitant]
     Indication: Product used for unknown indication
     Route: 065

REACTIONS (3)
  - Confusional state [Unknown]
  - Delirium [Unknown]
  - Hallucination [Recovered/Resolved]
